FAERS Safety Report 11985618 (Version 4)
Quarter: 2016Q1

REPORT INFORMATION
  Report Type: Report from Study
  Country: US (occurrence: US)
  Receive Date: 20160201
  Receipt Date: 20160314
  Transmission Date: 20160526
  Serious: Yes (Hospitalization, Other)
  Sender: FDA-Public Use
  Company Number: US-GILEAD-2016-0195348

PATIENT
  Age: 3 Year
  Sex: Male
  Weight: 16 kg

DRUGS (2)
  1. ADCIRCA [Suspect]
     Active Substance: TADALAFIL
     Indication: PULMONARY HYPERTENSION
     Dosage: 15 MG,
     Route: 048
     Dates: start: 20150611
  2. AMBRISENTAN [Suspect]
     Active Substance: AMBRISENTAN
     Indication: PULMONARY HYPERTENSION
     Dosage: 2.5 MG, BID
     Route: 048
     Dates: start: 20150708

REACTIONS (6)
  - Pneumonia [Not Recovered/Not Resolved]
  - Aspiration [Unknown]
  - Off label use [Not Recovered/Not Resolved]
  - Infection [Not Recovered/Not Resolved]
  - Respiratory distress [Unknown]
  - Corona virus infection [Unknown]

NARRATIVE: CASE EVENT DATE: 20150708
